FAERS Safety Report 17476382 (Version 2)
Quarter: 2020Q4

REPORT INFORMATION
  Report Type: Report from Study
  Country: CA (occurrence: CA)
  Receive Date: 20200228
  Receipt Date: 20201103
  Transmission Date: 20210113
  Serious: Yes (Hospitalization)
  Sender: FDA-Public Use
  Company Number: CA-JNJFOC-20191001528

PATIENT
  Age: 61 Year
  Sex: Female

DRUGS (1)
  1. STELARA [Suspect]
     Active Substance: USTEKINUMAB
     Indication: CROHN^S DISEASE
     Route: 058

REACTIONS (3)
  - Infection [Unknown]
  - Hypercalcaemia [Unknown]
  - Pancreatitis [Unknown]

NARRATIVE: CASE EVENT DATE: 20190917
